FAERS Safety Report 7321980-0 (Version None)
Quarter: 2011Q1

REPORT INFORMATION
  Report Type: 
  Country: None (occurrence: None)
  Receive Date: 20110228
  Receipt Date: 20110217
  Transmission Date: 20110831
  Serious: Yes (Other)
  Sender: FDA-Public Use
  Company Number: AU-BAXTER-2011BH004429

PATIENT
  Age: 51 Year
  Sex: Female

DRUGS (10)
  1. RADIOTHERAPY [Suspect]
     Indication: B-CELL LYMPHOMA
     Route: 065
  2. CHLORAMBUCIL [Suspect]
     Indication: B-CELL LYMPHOMA
     Route: 065
  3. CYCLOPHOSPHAMIDE [Suspect]
     Route: 065
  4. VINCRISTINE SULFATE [Suspect]
     Indication: B-CELL LYMPHOMA
     Route: 065
  5. PREDNISOLONE [Suspect]
     Route: 065
  6. CYCLOPHOSPHAMIDE [Suspect]
     Indication: B-CELL LYMPHOMA
     Route: 065
  7. DOXORUBICIN HCL [Suspect]
     Indication: B-CELL LYMPHOMA
     Route: 065
  8. FLUDARA [Suspect]
     Indication: B-CELL LYMPHOMA
     Route: 065
  9. RITUXIMAB [Suspect]
     Indication: B-CELL LYMPHOMA
     Route: 065
  10. PREDNISOLONE [Suspect]
     Indication: B-CELL LYMPHOMA
     Route: 065

REACTIONS (1)
  - MYELODYSPLASTIC SYNDROME [None]
